FAERS Safety Report 10193830 (Version 1)
Quarter: 2014Q2

REPORT INFORMATION
  Report Type: Spontaneous
  Country: US (occurrence: US)
  Receive Date: 20140524
  Receipt Date: 20140524
  Transmission Date: 20141212
  Serious: No
  Sender: FDA-Public Use
  Company Number: US-SANOFI-AVENTIS-2013SA070971

PATIENT
  Sex: 0

DRUGS (3)
  1. LANTUS [Suspect]
     Dosage: DOSE:22 UNIT(S)
     Route: 058
  2. LANTUS [Suspect]
     Dosage: DOSE:45 UNIT(S)
     Route: 058
  3. METFORMIN [Suspect]
     Route: 065

REACTIONS (7)
  - Depressed mood [Recovered/Resolved]
  - Crying [Recovered/Resolved]
  - Feeling abnormal [Unknown]
  - Oedema peripheral [Recovered/Resolved]
  - Asthenia [Recovered/Resolved]
  - Diarrhoea [Recovered/Resolved]
  - Blood glucose increased [Unknown]
